FAERS Safety Report 12266971 (Version 1)
Quarter: 2016Q2

REPORT INFORMATION
  Report Type: Spontaneous
  Country: US (occurrence: US)
  Receive Date: 20160414
  Receipt Date: 20160414
  Transmission Date: 20160815
  Serious: No
  Sender: FDA-Public Use
  Company Number: US-PFIZER INC-2016169099

PATIENT
  Age: 59 Year
  Sex: Male
  Weight: 102 kg

DRUGS (3)
  1. GABAPENTIN. [Suspect]
     Active Substance: GABAPENTIN
     Indication: MUSCULOSKELETAL DISCOMFORT
  2. GABAPENTIN. [Suspect]
     Active Substance: GABAPENTIN
     Indication: DIABETES MELLITUS
  3. GABAPENTIN. [Suspect]
     Active Substance: GABAPENTIN
     Indication: BACK DISORDER
     Dosage: UNK
     Dates: start: 2014, end: 2014

REACTIONS (1)
  - Drug ineffective for unapproved indication [Recovered/Resolved]

NARRATIVE: CASE EVENT DATE: 2014
